FAERS Safety Report 5093602-3 (Version None)
Quarter: 2006Q3

REPORT INFORMATION
  Report Type: 
  Country: None (occurrence: None)
  Receive Date: 20060829
  Receipt Date: 20060818
  Transmission Date: 20061208
  Serious: Yes (Hospitalization)
  Sender: FDA-Public Use
  Company Number: OXER20060071

PATIENT
  Age: 43 Year
  Sex: Female
  Weight: 112.4921 kg

DRUGS (5)
  1. OXYCODONE ER  20 MG  ENDO [Suspect]
     Indication: SCIATICA
     Dosage: PO
     Route: 048
     Dates: start: 20060717, end: 20060718
  2. TRAZODONE HCL [Concomitant]
  3. COZAAR [Concomitant]
  4. RISPERDAL [Concomitant]
  5. AVANDIA [Concomitant]

REACTIONS (7)
  - CONFUSIONAL STATE [None]
  - DEPRESSED MOOD [None]
  - DIZZINESS [None]
  - DRUG INEFFECTIVE [None]
  - HOMICIDAL IDEATION [None]
  - PRURITUS [None]
  - SUICIDAL IDEATION [None]
